FAERS Safety Report 5840481-X (Version None)
Quarter: 2008Q3

REPORT INFORMATION
  Report Type: 
  Country: None (occurrence: None)
  Receive Date: 20080811
  Receipt Date: 20080730
  Transmission Date: 20090109
  Serious: Yes (Hospitalization)
  Sender: FDA-Public Use
  Company Number: US-SANOFI-SYNTHELABO-A03200803035

PATIENT
  Sex: Male

DRUGS (8)
  1. AMBIEN [Concomitant]
     Indication: DRUG USE FOR UNKNOWN INDICATION
     Dosage: UNK
     Route: 048
  2. XANAX [Concomitant]
     Indication: DRUG USE FOR UNKNOWN INDICATION
     Dosage: UNK
     Route: 065
  3. SIMVASTATIN [Concomitant]
     Indication: DRUG USE FOR UNKNOWN INDICATION
     Dosage: UNK
     Route: 065
  4. LISINOPRIL [Concomitant]
     Indication: DRUG USE FOR UNKNOWN INDICATION
     Dosage: UNK
     Route: 065
  5. ATENOLOL [Concomitant]
     Indication: DRUG USE FOR UNKNOWN INDICATION
     Dosage: UNK
     Route: 065
     Dates: end: 20080701
  6. PLAVIX [Suspect]
     Indication: STENT PLACEMENT
     Route: 048
     Dates: start: 20080401
  7. COUMADIN [Suspect]
     Dosage: UNK
     Route: 048
     Dates: end: 20080720
  8. ASPIRIN [Suspect]
     Dosage: UNK
     Route: 048
     Dates: start: 20080401

REACTIONS (6)
  - ASTHENIA [None]
  - HAEMATURIA [None]
  - HYPERHIDROSIS [None]
  - LETHARGY [None]
  - PYREXIA [None]
  - RENAL PAPILLARY NECROSIS [None]
